FAERS Safety Report 5173305-7 (Version None)
Quarter: 2006Q4

REPORT INFORMATION
  Report Type: 
  Country: None (occurrence: None)
  Receive Date: 20061214
  Receipt Date: 20061201
  Transmission Date: 20070319
  Serious: Yes (Hospitalization)
  Sender: FDA-Public Use
  Company Number: FR-BAYER-200611148BFR

PATIENT
  Age: 79 Year
  Sex: Female

DRUGS (19)
  1. CIPROFLOXACIN [Suspect]
     Indication: SEPSIS
     Route: 042
     Dates: start: 20061026, end: 20061108
  2. VITAMIN B1 AND B6 [Suspect]
     Indication: UNEVALUABLE EVENT
  3. FORTUM [Suspect]
     Indication: SEPSIS
     Route: 042
     Dates: start: 20061026, end: 20061108
  4. VANCOMYCIN [Suspect]
     Indication: SEPSIS
     Route: 042
     Dates: start: 20061019, end: 20061108
  5. CLAMOXYL [Concomitant]
     Indication: SEPSIS
     Dates: start: 20061010, end: 20061019
  6. ROCEPHIN [Concomitant]
     Indication: SEPSIS
     Route: 042
     Dates: start: 20061019
  7. ZYVOX [Concomitant]
     Indication: SEPSIS
     Route: 042
     Dates: start: 20061019, end: 20061026
  8. APROVEL [Concomitant]
     Indication: UNEVALUABLE EVENT
  9. CORDARONE [Concomitant]
     Indication: UNEVALUABLE EVENT
  10. INIPOMP [Concomitant]
     Indication: UNEVALUABLE EVENT
  11. ACTONEL [Concomitant]
     Indication: UNEVALUABLE EVENT
  12. LOVENOX [Concomitant]
     Indication: UNEVALUABLE EVENT
  13. LASIX [Concomitant]
     Indication: UNEVALUABLE EVENT
  14. ASPIRIN [Concomitant]
     Indication: UNEVALUABLE EVENT
  15. TRAMADOL HCL [Concomitant]
     Indication: UNEVALUABLE EVENT
  16. TRACITRANS [Concomitant]
     Indication: UNEVALUABLE EVENT
  17. CERNEVIT-12 [Concomitant]
     Indication: UNEVALUABLE EVENT
  18. G 5 [Concomitant]
     Indication: UNEVALUABLE EVENT
  19. NACL 500 [Concomitant]
     Indication: UNEVALUABLE EVENT

REACTIONS (5)
  - ANURIA [None]
  - ESCHAR [None]
  - FUNGAL INFECTION [None]
  - RASH ERYTHEMATOUS [None]
  - RENAL FAILURE ACUTE [None]
